FAERS Safety Report 8372568-4 (Version None)
Quarter: 2012Q2

REPORT INFORMATION
  Report Type: 
  Country: None (occurrence: None)
  Receive Date: 20120521
  Receipt Date: 20120515
  Transmission Date: 20120825
  Serious: Yes (Death, Hospitalization)
  Sender: FDA-Public Use
  Company Number: PHHY2012JP035458

PATIENT
  Sex: Male

DRUGS (8)
  1. JUUZENTAIHOTOU [Concomitant]
     Dosage: 7.5 G, UNK
     Route: 048
  2. FLOMOX [Concomitant]
     Dosage: 300 MG, UNK
     Route: 048
     Dates: start: 20110114, end: 20110121
  3. ASPIRIN [Concomitant]
     Dosage: 3 G, UNK
     Route: 048
     Dates: start: 20110114, end: 20110121
  4. RED BLOOD CELLS, CONCENTRATED [Concomitant]
     Dosage: 2 U, UNK
     Dates: start: 20090122, end: 20110128
  5. LOXONIN [Concomitant]
     Dosage: 180 MG, UNK
     Route: 048
     Dates: start: 20110114, end: 20110121
  6. EXJADE [Suspect]
     Indication: IRON OVERLOAD
     Dosage: 500 MG, DAILY
     Route: 048
     Dates: start: 20101105
  7. EXJADE [Suspect]
     Indication: MYELODYSPLASTIC SYNDROME
  8. LEVOTHYROXINE SODIUM [Concomitant]
     Indication: HYPOTHYROIDISM
     Dosage: 100 UG, UNK
     Route: 048

REACTIONS (5)
  - BLOOD CREATININE INCREASED [None]
  - BLOOD UREA INCREASED [None]
  - NEOPLASM MALIGNANT [None]
  - PNEUMONIA [None]
  - NEOPLASM PROGRESSION [None]
